FAERS Safety Report 9190489 (Version 2)
Quarter: 2013Q2

REPORT INFORMATION
  Report Type: Spontaneous
  Country: CA (occurrence: CA)
  Receive Date: 20130326
  Receipt Date: 20130618
  Transmission Date: 20140414
  Serious: Yes (Other)
  Sender: FDA-Public Use
  Company Number: CA-JNJFOC-20130312629

PATIENT
  Age: 67 Year
  Sex: Female
  Weight: 63.5 kg

DRUGS (4)
  1. NICORETTE [Suspect]
     Indication: EX-TOBACCO USER
     Dosage: 2 MG GUM, 10 PIECES PER DAY
     Route: 048
     Dates: start: 20110202
  2. FOSAMAX [Concomitant]
     Indication: BONE DISORDER
     Route: 065
  3. ASPIRIN [Concomitant]
     Indication: ANTICOAGULANT THERAPY
     Route: 065
     Dates: start: 2000
  4. CALCIUM [Concomitant]
     Indication: BONE DISORDER
     Route: 065
     Dates: start: 2000

REACTIONS (3)
  - Nicotine dependence [Not Recovered/Not Resolved]
  - Incorrect drug administration duration [Unknown]
  - Product physical issue [Unknown]
